FAERS Safety Report 11175374 (Version 1)
Quarter: 2015Q2

REPORT INFORMATION
  Report Type: Spontaneous
  Country: DE (occurrence: DE)
  Receive Date: 20150609
  Receipt Date: 20150609
  Transmission Date: 20150821
  Serious: Yes (Hospitalization)
  Sender: FDA-Public Use
  Company Number: DE-TEVA-566597GER

PATIENT
  Age: 47 Year
  Sex: Female
  Weight: 68 kg

DRUGS (3)
  1. MCP-RATIOPHARM 10 MG ZAEPFCHEN [Suspect]
     Active Substance: METOCLOPRAMIDE
     Indication: NAUSEA
     Route: 054
     Dates: start: 201505, end: 2015
  2. ANTIBIOTIC [Concomitant]
     Active Substance: UNSPECIFIED INGREDIENT
     Indication: BLOOD URINE PRESENT
     Dates: start: 201505
  3. MCP-RATIOPHARM 10 MG ZAEPFCHEN [Suspect]
     Active Substance: METOCLOPRAMIDE
     Indication: VOMITING

REACTIONS (5)
  - Medical induction of coma [Unknown]
  - Muscle spasms [None]
  - Unwanted awareness during anaesthesia [None]
  - Seizure [Unknown]
  - Toxicity to various agents [Unknown]

NARRATIVE: CASE EVENT DATE: 201505
